FAERS Safety Report 5267303-2 (Version None)
Quarter: 2007Q1

REPORT INFORMATION
  Report Type: 
  Country: None (occurrence: None)
  Receive Date: 20070316
  Receipt Date: 20070309
  Transmission Date: 20070707
  Serious: Yes (Hospitalization)
  Sender: FDA-Public Use
  Company Number: JP-JPN-A200700850

PATIENT
  Age: 73 Year
  Sex: Female
  Weight: 44 kg

DRUGS (24)
  1. ZOVIRAX [Suspect]
     Indication: HERPES ZOSTER
     Route: 042
     Dates: start: 20070219, end: 20070221
  2. VALTREX [Suspect]
     Indication: HERPES ZOSTER
     Dosage: 1G THREE TIMES PER DAY
     Route: 048
     Dates: start: 20070217, end: 20070222
  3. ARASENA-A [Concomitant]
     Route: 065
  4. VOLTAREN [Concomitant]
     Indication: PAIN
     Route: 054
     Dates: start: 20070217, end: 20070221
  5. GASCON [Concomitant]
     Indication: FLATULENCE
     Dosage: 240MG PER DAY
     Route: 048
     Dates: start: 20070220, end: 20070221
  6. GASTER D [Concomitant]
     Dosage: 20MG PER DAY
     Route: 048
  7. MAGLAX [Concomitant]
     Indication: CONSTIPATION
     Dosage: 2970MG PER DAY
     Route: 048
  8. URSO [Concomitant]
     Indication: CHOLELITHIASIS
     Dosage: 150MG PER DAY
     Route: 048
  9. UNKNOWN MEDICATION [Concomitant]
     Indication: STOMACH DISCOMFORT
     Route: 048
     Dates: start: 20070216, end: 20070221
  10. STROCAIN [Concomitant]
     Indication: STOMACH DISCOMFORT
     Dosage: 30MG PER DAY
     Route: 048
     Dates: start: 20070216, end: 20070221
  11. ASPIRIN [Concomitant]
     Indication: ANGINA PECTORIS
     Dosage: 100MG PER DAY
     Route: 048
  12. FUROSEMIDE [Concomitant]
     Dosage: 20MG PER DAY
     Route: 048
  13. NU-LOTAN [Concomitant]
     Indication: HYPERTENSION
     Dosage: 25MG PER DAY
     Route: 048
  14. PERSANTIN [Concomitant]
     Indication: THROMBOSIS PROPHYLAXIS
     Dosage: 300MG PER DAY
     Route: 048
  15. TAMBOCOR [Concomitant]
     Indication: TACHYARRHYTHMIA
     Dosage: 150MG PER DAY
     Route: 048
  16. ASPARA-CA [Concomitant]
     Indication: OSTEOPOROSIS
     Dosage: 800MG PER DAY
     Route: 048
     Dates: end: 20070222
  17. ROCALTROL [Concomitant]
     Indication: OSTEOPOROSIS
     Dosage: .5MCG PER DAY
     Route: 048
     Dates: end: 20070222
  18. BENET [Concomitant]
     Indication: OSTEOPOROSIS
     Dosage: 2.5MG PER DAY
     Route: 048
     Dates: end: 20070222
  19. YAKUBAN [Concomitant]
     Indication: BACK PAIN
     Route: 062
     Dates: end: 20070222
  20. GASMOTIN [Concomitant]
     Dosage: 15MG PER DAY
     Route: 048
     Dates: start: 20070302
  21. CHINESE MEDICINE [Concomitant]
     Route: 048
     Dates: start: 20070224, end: 20070226
  22. LAC B [Concomitant]
     Route: 048
     Dates: start: 20070224, end: 20070224
  23. PANTOSIN [Concomitant]
     Dosage: 3G PER DAY
     Route: 048
     Dates: start: 20070224, end: 20070226
  24. GANATON [Concomitant]
     Dosage: 150MG PER DAY
     Route: 048
     Dates: start: 20070224, end: 20070226

REACTIONS (4)
  - ABDOMINAL DISCOMFORT [None]
  - ABDOMINAL DISTENSION [None]
  - HYPONATRAEMIA [None]
  - ILEUS PARALYTIC [None]
